FAERS Safety Report 10765051 (Version 5)
Quarter: 2015Q4

REPORT INFORMATION
  Report Type: Spontaneous
  Country: US (occurrence: US)
  Receive Date: 20150205
  Receipt Date: 20151207
  Transmission Date: 20160304
  Serious: No
  Sender: FDA-Public Use
  Company Number: US-PFIZER INC-2015046689

PATIENT
  Age: 60 Year
  Sex: Male
  Weight: 165.53 kg

DRUGS (4)
  1. EFFEXOR [Concomitant]
     Active Substance: VENLAFAXINE HYDROCHLORIDE
     Indication: DEPRESSION
     Dosage: 75 MG, 3X/DAY
  2. LYRICA [Suspect]
     Active Substance: PREGABALIN
     Indication: DIABETIC NEUROPATHY
     Dosage: 1 DF, 3X/DAY (1 CAPSULE WITH DINNER, 1 CAPSULE AT BEDTIME, 1 CAPSULE IN MORNING)
     Route: 048
     Dates: start: 201401, end: 20141220
  3. LYRICA [Suspect]
     Active Substance: PREGABALIN
     Indication: PAIN
  4. EFFEXOR [Concomitant]
     Active Substance: VENLAFAXINE HYDROCHLORIDE
     Indication: MENTAL DISORDER

REACTIONS (2)
  - Drug effect incomplete [Unknown]
  - Drug withdrawal syndrome [Unknown]
